FAERS Safety Report 14374648 (Version 2)
Quarter: 2018Q1

REPORT INFORMATION
  Report Type: Other
  Country: None (occurrence: GB)
  Receive Date: 20180111
  Receipt Date: 20180223
  Transmission Date: 20180509
  Serious: Yes (Death)
  Sender: FDA-Public Use
  Company Number: GB-BIO PRODUCTS LABORATORY LTD-2039918

PATIENT
  Age: 52 Year
  Sex: Male

DRUGS (4)
  1. GENERIC IVIG [Suspect]
     Active Substance: HUMAN IMMUNOGLOBULIN G
     Indication: INTERSTITIAL LUNG DISEASE
     Route: 042
  2. METHYLPREDNISOLONE. [Suspect]
     Active Substance: METHYLPREDNISOLONE
  3. CYCLOPHOSPHAMIDE. [Suspect]
     Active Substance: CYCLOPHOSPHAMIDE
  4. RITUXIMAB. [Suspect]
     Active Substance: RITUXIMAB

REACTIONS (5)
  - Dyspnoea [Unknown]
  - Respiratory failure [Fatal]
  - Product use in unapproved indication [Unknown]
  - Drug ineffective for unapproved indication [Fatal]
  - Drug ineffective [Fatal]
